FAERS Safety Report 15394440 (Version 1)
Quarter: 2018Q3

REPORT INFORMATION
  Report Type: Report from Study
  Country: None (occurrence: US)
  Receive Date: 20180918
  Receipt Date: 20180918
  Transmission Date: 20181010
  Serious: Yes (Hospitalization, Other)
  Sender: FDA-Public Use
  Company Number: US-ABBVIE-18K-163-2483076-00

PATIENT
  Age: 59 Year
  Sex: Female

DRUGS (1)
  1. HUMIRA [Suspect]
     Active Substance: ADALIMUMAB
     Indication: RHEUMATOID ARTHRITIS
     Route: 058
     Dates: start: 20170112, end: 20180702

REACTIONS (13)
  - Cough [Unknown]
  - Blood pressure increased [Unknown]
  - Meningitis [Unknown]
  - Chills [Unknown]
  - Wound [Unknown]
  - Fall [Unknown]
  - Feeling cold [Unknown]
  - Pain [Unknown]
  - Skin exfoliation [Unknown]
  - Blister [Unknown]
  - Headache [Unknown]
  - Ankle fracture [Recovering/Resolving]
  - Body temperature increased [Unknown]

NARRATIVE: CASE EVENT DATE: 20180507
